FAERS Safety Report 11002501 (Version 1)
Quarter: 2015Q2

REPORT INFORMATION
  Report Type: Spontaneous
  Country: JP (occurrence: JP)
  Receive Date: 20150408
  Receipt Date: 20150408
  Transmission Date: 20150821
  Serious: Yes (Death, Other)
  Sender: FDA-Public Use
  Company Number: JP-GLAXOSMITHKLINE-JP2015JPN044385

PATIENT
  Age: 58 Year
  Sex: Female

DRUGS (2)
  1. VOTRIENT [Suspect]
     Active Substance: PAZOPANIB HYDROCHLORIDE
     Dosage: 800 MG, 1D
     Route: 048
     Dates: end: 201409
  2. VOTRIENT [Suspect]
     Active Substance: PAZOPANIB HYDROCHLORIDE
     Indication: LIPOSARCOMA METASTATIC
     Dosage: 600 MG, 1D
     Route: 048
     Dates: start: 201408

REACTIONS (2)
  - Leiomyosarcoma metastatic [Fatal]
  - Hyponatraemia [Unknown]

NARRATIVE: CASE EVENT DATE: 201409
